FAERS Safety Report 18611632 (Version 1)
Quarter: 2020Q4

REPORT INFORMATION
  Report Type: Spontaneous
  Country: US (occurrence: US)
  Receive Date: 20201204
  Receipt Date: 20201204
  Transmission Date: 20210114
  Serious: Yes (Disabling)
  Sender: FDA-Public Use
  Company Number: None

PATIENT
  Age: 32 Year
  Sex: Male
  Weight: 114.75 kg

DRUGS (3)
  1. ZICAM NASAL ALLCLEAR NASAL CLEANSER SWABS [Suspect]
     Active Substance: EUCALYPTOL\MENTHOL
  2. ZZZQUIL NIGHTTIME SLEEP-AID [Concomitant]
     Active Substance: DIPHENHYDRAMINE HYDROCHLORIDE
  3. ZICAM EXTREME CONGESTION RELIEF (OXYMETAZOLINE HYDROCHLORIDE) [Suspect]
     Active Substance: OXYMETAZOLINE HYDROCHLORIDE
     Indication: MULTIPLE ALLERGIES
     Dates: start: 20201122, end: 20201125

REACTIONS (7)
  - Drug ineffective [None]
  - Anosmia [None]
  - Nasal discomfort [None]
  - Rhinalgia [None]
  - Nasal congestion [None]
  - Ageusia [None]
  - Dyspnoea [None]

NARRATIVE: CASE EVENT DATE: 20201128
